FAERS Safety Report 10752599 (Version 1)
Quarter: 2015Q1

REPORT INFORMATION
  Report Type: Report from Study
  Country: US (occurrence: US)
  Receive Date: 20150130
  Receipt Date: 20150130
  Transmission Date: 20150721
  Serious: Yes (Other)
  Sender: FDA-Public Use
  Company Number: US-ABBVIE-14P-163-1232606-00

PATIENT
  Sex: Female
  Weight: 70.37 kg

DRUGS (1)
  1. LUPRON DEPOT [Suspect]
     Active Substance: LEUPROLIDE ACETATE
     Indication: UTERINE LEIOMYOMA
     Dosage: UNKNOWN
     Dates: start: 2003, end: 2003

REACTIONS (3)
  - Uterine leiomyoma [Unknown]
  - Uterine leiomyoma [Unknown]
  - Anaemia [Unknown]

NARRATIVE: CASE EVENT DATE: 2012
